FAERS Safety Report 21754440 (Version 7)
Quarter: 2025Q1

REPORT INFORMATION
  Report Type: Spontaneous
  Country: US (occurrence: US)
  Receive Date: 20221220
  Receipt Date: 20250103
  Transmission Date: 20250409
  Serious: Yes (Other)
  Sender: PFIZER
  Company Number: US-PFIZER INC-202101050059

PATIENT
  Age: 82 Year
  Sex: Female
  Weight: 54.931 kg

DRUGS (4)
  1. BOSULIF [Suspect]
     Active Substance: BOSUTINIB MONOHYDRATE
     Indication: Chronic myeloid leukaemia
  2. BOSULIF [Suspect]
     Active Substance: BOSUTINIB MONOHYDRATE
     Dosage: [TAKE 2 TABLETS BY MOUTH DAILY/TAKE WITH FOOD. SWALLOW TABLETS WHOLE; DO NOT CRUSH OR CUT TABLETS]
     Route: 048
  3. BOSULIF [Suspect]
     Active Substance: BOSUTINIB MONOHYDRATE
     Route: 048
  4. BOSULIF [Suspect]
     Active Substance: BOSUTINIB MONOHYDRATE
     Route: 048

REACTIONS (3)
  - Eye operation [Unknown]
  - Product dose omission issue [Unknown]
  - Product prescribing error [Unknown]
